FAERS Safety Report 17115928 (Version 6)
Quarter: 2022Q3

REPORT INFORMATION
  Report Type: Spontaneous
  Country: US (occurrence: US)
  Receive Date: 20191205
  Receipt Date: 20220712
  Transmission Date: 20221026
  Serious: No
  Sender: FDA-Public Use
  Company Number: US-PFIZER INC-2019522208

PATIENT
  Age: 56 Year
  Sex: Female
  Weight: 61 kg

DRUGS (3)
  1. ESTRING [Suspect]
     Active Substance: ESTRADIOL
     Indication: Atrophic vulvovaginitis
     Dosage: UNK
     Route: 067
  2. ESTRING [Suspect]
     Active Substance: ESTRADIOL
     Indication: Menopausal symptoms
  3. ESTRING [Suspect]
     Active Substance: ESTRADIOL
     Indication: Dyspareunia

REACTIONS (8)
  - Device issue [Unknown]
  - Device difficult to use [Unknown]
  - Drug ineffective [Unknown]
  - Libido decreased [Unknown]
  - Hot flush [Unknown]
  - Night sweats [Unknown]
  - Vulvovaginal dryness [Unknown]
  - Malaise [Not Recovered/Not Resolved]
